FAERS Safety Report 4947062-0 (Version None)
Quarter: 2006Q1

REPORT INFORMATION
  Report Type: 
  Country: None (occurrence: None)
  Receive Date: 20060314
  Receipt Date: 20060227
  Transmission Date: 20060701
  Serious: Yes (Hospitalization)
  Sender: FDA-Public Use
  Company Number: 222962

PATIENT
  Age: 54 Year
  Sex: Female
  Weight: 70.5 kg

DRUGS (3)
  1. HERCEPTIN [Suspect]
     Indication: BREAST CANCER METASTATIC
     Dosage: SEE IMAGE
     Route: 042
     Dates: start: 20051117
  2. CAPECITABINE(CAPECITABINE) [Suspect]
     Indication: BREAST CANCER METASTATIC
     Dosage: 825 MG/M2,QDX2D/14DC, ORAL
     Route: 048
     Dates: start: 20051117
  3. VINORELBINE TARTRATE [Suspect]
     Indication: BREAST CANCER METASTATIC
     Dosage: 25 MG/M2, DAY1+8Q3W, INTRAVENOUS
     Route: 042
     Dates: start: 20051117

REACTIONS (1)
  - PULMONARY EMBOLISM [None]
